FAERS Safety Report 9868236 (Version 2)
Quarter: 2014Q2

REPORT INFORMATION
  Report Type: Spontaneous
  Country: US (occurrence: US)
  Receive Date: 20140204
  Receipt Date: 20140430
  Transmission Date: 20141212
  Serious: No
  Sender: FDA-Public Use
  Company Number: US-GILEAD-2014-0093505

PATIENT
  Sex: Female

DRUGS (4)
  1. LETAIRIS [Suspect]
     Indication: PULMONARY HYPERTENSION
     Dosage: 10 MG, QD
     Route: 065
     Dates: start: 20130823
  2. LETAIRIS [Suspect]
     Indication: SJOGREN^S SYNDROME
  3. VENTAVIS [Concomitant]
  4. REVATIO [Concomitant]

REACTIONS (2)
  - Alopecia [Unknown]
  - Stress [Unknown]
